FAERS Safety Report 19412302 (Version 2)
Quarter: 2022Q4

REPORT INFORMATION
  Report Type: Spontaneous
  Country: FR (occurrence: FR)
  Receive Date: 20210614
  Receipt Date: 20221017
  Transmission Date: 20230113
  Serious: Yes (Hospitalization)
  Sender: FDA-Public Use
  Company Number: None

PATIENT
  Age: 51 Year
  Sex: Male
  Weight: 67 kg

DRUGS (17)
  1. CIPROFLOXACIN LACTATE [Suspect]
     Active Substance: CIPROFLOXACIN LACTATE
     Indication: Antibiotic prophylaxis
     Dosage: 400 MG, QD
     Route: 042
     Dates: start: 20210402, end: 20210406
  2. IOMERON [Suspect]
     Active Substance: IOMEPROL
     Indication: Computerised tomogram
     Dosage: SINGLE DOSE
     Route: 042
     Dates: start: 20210420, end: 20210420
  3. AMOXICILLIN [Suspect]
     Active Substance: AMOXICILLIN
     Indication: Antibiotic prophylaxis
     Dosage: 3 G, QD
     Dates: start: 20210415, end: 20210422
  4. MEROPENEM ANHYDROUS [Suspect]
     Active Substance: MEROPENEM ANHYDROUS
     Indication: Antibiotic prophylaxis
     Dosage: 1 G, QD
     Route: 042
     Dates: start: 20210401, end: 20210402
  5. HEPARIN SODIUM [Suspect]
     Active Substance: HEPARIN SODIUM
     Indication: Thrombosis prophylaxis
     Dosage: 6000 IU, QD
     Route: 058
     Dates: start: 20210316, end: 20210414
  6. SUFENTANIL [Suspect]
     Active Substance: SUFENTANIL
     Indication: Sedation
     Dosage: 0.5 ML / HEURE
     Route: 042
     Dates: start: 20210401
  7. LANSOPRAZOLE [Suspect]
     Active Substance: LANSOPRAZOLE
     Indication: Prophylaxis against gastrointestinal ulcer
     Dosage: 30 MG, QD
     Route: 048
     Dates: start: 20210403
  8. PROPOFOL [Suspect]
     Active Substance: PROPOFOL
     Indication: Sedation
     Dosage: 0.20 ML/HEURE
     Route: 042
     Dates: start: 20210401, end: 20210521
  9. INSULIN NOS [Suspect]
     Active Substance: INSULIN NOS
     Indication: Insulin therapy
     Dosage: 100 UI/ML EN FONCTION DE LA GLYC?MIE
     Route: 058
     Dates: start: 20210406, end: 20210409
  10. IMIPENEM [Suspect]
     Active Substance: IMIPENEM
     Indication: Antibiotic prophylaxis
     Dosage: 2 G, QD
     Route: 042
     Dates: start: 20210420, end: 20210421
  11. ERTAPENEM [Suspect]
     Active Substance: ERTAPENEM
     Indication: Antibiotic prophylaxis
     Dosage: UNK
     Route: 042
     Dates: start: 20210331, end: 20210331
  12. HEPARINE BOURNONVILLE PHARM [Concomitant]
  13. IMIPENEM [Concomitant]
     Active Substance: IMIPENEM
  14. MEROPENEM [Concomitant]
     Active Substance: MEROPENEM
  15. AMOXICILLIN [Concomitant]
     Active Substance: AMOXICILLIN
  16. IOMERON [Concomitant]
     Active Substance: IOMEPROL
     Indication: Computerised tomogram
  17. INSULINE ACTRAPID [Concomitant]

REACTIONS (2)
  - Drug reaction with eosinophilia and systemic symptoms [Recovering/Resolving]
  - Rash morbilliform [Recovering/Resolving]

NARRATIVE: CASE EVENT DATE: 20210406
